FAERS Safety Report 21650932 (Version 1)
Quarter: 2022Q4

REPORT INFORMATION
  Report Type: Report from Study
  Country: US (occurrence: US)
  Receive Date: 20221128
  Receipt Date: 20221128
  Transmission Date: 20230113
  Serious: No
  Sender: FDA-Public Use
  Company Number: US-ABBVIE-22K-163-4503130-00

PATIENT
  Sex: Female

DRUGS (2)
  1. VENCLEXTA [Suspect]
     Active Substance: VENETOCLAX
     Indication: Hodgkin^s disease nodular sclerosis
     Route: 048
  2. VENCLEXTA [Suspect]
     Active Substance: VENETOCLAX
     Indication: Hodgkin^s disease nodular sclerosis
     Route: 048

REACTIONS (4)
  - Off label use [Unknown]
  - Balance disorder [Unknown]
  - Vertigo [Unknown]
  - Dizziness [Unknown]
